FAERS Safety Report 23152986 (Version 1)
Quarter: 2023Q4

REPORT INFORMATION
  Report Type: Other
  Country: None (occurrence: ES)
  Receive Date: 20231107
  Receipt Date: 20231107
  Transmission Date: 20240109
  Serious: Yes (Hospitalization)
  Sender: FDA-Public Use
  Company Number: ES-B.Braun Medical Inc.-2147854

PATIENT
  Age: 63 Year
  Sex: Female

DRUGS (3)
  1. MEROPENEM\SODIUM CHLORIDE [Suspect]
     Active Substance: MEROPENEM\SODIUM CHLORIDE
     Indication: Bacterial infection
  2. DAPTOMYCIN [Suspect]
     Active Substance: DAPTOMYCIN
  3. CEFTAROLINE [Suspect]
     Active Substance: CEFTAROLINE

REACTIONS (2)
  - Drug ineffective [None]
  - Clostridium difficile colitis [None]
